FAERS Safety Report 5950481-7 (Version None)
Quarter: 2008Q4

REPORT INFORMATION
  Report Type: 
  Country: None (occurrence: None)
  Receive Date: 20081022
  Receipt Date: 20080707
  Transmission Date: 20090506
  Serious: No
  Sender: FDA-Public Use
  Company Number: SPV1-2008-01246

PATIENT
  Age: 16 Year
  Sex: Female
  Weight: 74.8 kg

DRUGS (3)
  1. VYVANSE [Suspect]
     Indication: ATTENTION DEFICIT/HYPERACTIVITY DISORDER
     Dosage: 50 MG, 1X/DAY:QD, ORAL
     Route: 048
     Dates: start: 20080215, end: 20080331
  2. SEROQUEL [Suspect]
     Indication: ANXIETY
     Dosage: 0.25 MG, 1X/DAY:QD AS REQ'D, ORAL
     Route: 048
     Dates: start: 20080204, end: 20080331
  3. SEROQUEL [Suspect]
     Indication: INSOMNIA
     Dosage: 0.25 MG, 1X/DAY:QD AS REQ'D, ORAL
     Route: 048
     Dates: start: 20080204, end: 20080331

REACTIONS (7)
  - ABNORMAL BEHAVIOUR [None]
  - ANGER [None]
  - ATRIOVENTRICULAR BLOCK FIRST DEGREE [None]
  - CHEST PAIN [None]
  - INSOMNIA [None]
  - OFF LABEL USE [None]
  - SOMNOLENCE [None]
